FAERS Safety Report 5340510-6 (Version None)
Quarter: 2007Q2

REPORT INFORMATION
  Report Type: 
  Country: None (occurrence: None)
  Receive Date: 20070405
  Receipt Date: 20061130
  Transmission Date: 20071010
  Serious: No
  Sender: FDA-Public Use
  Company Number: US200611005548

PATIENT
  Age: 40 Year
  Sex: Male
  Weight: 77.1 kg

DRUGS (2)
  1. CYMBALTA [Suspect]
     Indication: SYNCOPE
     Dosage: 40 MG, DAILY (1/D),
     Dates: start: 20050101
  2. PROVIGIL [Concomitant]

REACTIONS (2)
  - BLOOD CHOLESTEROL INCREASED [None]
  - LOW DENSITY LIPOPROTEIN INCREASED [None]
